FAERS Safety Report 7007267-4 (Version None)
Quarter: 2010Q3

REPORT INFORMATION
  Report Type: 
  Country: None (occurrence: None)
  Receive Date: 20100920
  Receipt Date: 20100902
  Transmission Date: 20110219
  Serious: Yes (Other)
  Sender: FDA-Public Use
  Company Number: ACO_01073_2010

PATIENT
  Sex: Male
  Weight: 88.4514 kg

DRUGS (5)
  1. AMPYRA [Suspect]
     Indication: GAIT DISTURBANCE
     Dosage: (10 MG BID ORAL)
     Route: 048
     Dates: start: 20100501, end: 20100901
  2. ZANAFLEX [Suspect]
     Indication: MULTIPLE SCLEROSIS
     Dosage: (DF ORAL)
     Route: 048
  3. TYSABRI [Concomitant]
  4. PROTONIX [Concomitant]
  5. VITAMIN D [Concomitant]

REACTIONS (5)
  - BACK PAIN [None]
  - CONDITION AGGRAVATED [None]
  - DRUG EFFECT DECREASED [None]
  - MULTIPLE SCLEROSIS RELAPSE [None]
  - MUSCULOSKELETAL STIFFNESS [None]
